FAERS Safety Report 20048541 (Version 1)
Quarter: 2021Q4

REPORT INFORMATION
  Report Type: Spontaneous
  Country: CA (occurrence: None)
  Receive Date: 20211109
  Receipt Date: 20211109
  Transmission Date: 20220303
  Serious: No
  Sender: FDA-Public Use
  Company Number: None

PATIENT
  Age: 25 Year
  Sex: Female
  Weight: 83.25 kg

DRUGS (3)
  1. CYMBALTA [Suspect]
     Active Substance: DULOXETINE HYDROCHLORIDE
     Indication: Abdominal pain
     Dosage: FREQUENCY : DAILY;?
     Route: 048
     Dates: start: 20121113, end: 20211101
  2. ACETAMINOPHEN\TRAMADOL [Concomitant]
     Active Substance: ACETAMINOPHEN\TRAMADOL
  3. MELATONIN [Concomitant]
     Active Substance: MELATONIN

REACTIONS (5)
  - Withdrawal syndrome [None]
  - Fatigue [None]
  - Nausea [None]
  - Mood swings [None]
  - Headache [None]
